FAERS Safety Report 5258361-X (Version None)
Quarter: 2007Q1

REPORT INFORMATION
  Report Type: 
  Country: None (occurrence: None)
  Receive Date: 20061117
  Receipt Date: 20060322
  Transmission Date: 20070707
  Serious: Yes (Other)
  Sender: FDA-Public Use
  Company Number: US-JNJFOC-20060305980

PATIENT
  Sex: Female

DRUGS (1)
  1. LEVAQUIN [Suspect]
     Dosage: 1 IN 1 DAY, ORAL
     Route: 048
     Dates: start: 20050801, end: 20050801

REACTIONS (1)
  - ANAPHYLACTIC SHOCK [None]
